FAERS Safety Report 6607524-7 (Version None)
Quarter: 2010Q1

REPORT INFORMATION
  Report Type: 
  Country: None (occurrence: None)
  Receive Date: 20100301
  Receipt Date: 20100216
  Transmission Date: 20100710
  Serious: Yes (Hospitalization)
  Sender: FDA-Public Use
  Company Number: PHHO2010JP01636

PATIENT
  Sex: Female
  Weight: 50 kg

DRUGS (4)
  1. EXELON [Suspect]
     Indication: DEMENTIA ALZHEIMER'S TYPE
     Dosage: LEVEL 1
     Route: 062
     Dates: start: 20090204, end: 20090310
  2. EXELON [Suspect]
     Dosage: LEVEL 2
     Route: 062
     Dates: start: 20090311, end: 20090407
  3. EXELON [Suspect]
     Dosage: LEVEL 3
     Route: 062
     Dates: start: 20090408, end: 20090421
  4. EXELON [Suspect]
     Dosage: LEVEL 4
     Route: 062
     Dates: start: 20090422

REACTIONS (4)
  - BLOOD PRESSURE DECREASED [None]
  - BRONCHITIS [None]
  - HYPERTENSION [None]
  - PYREXIA [None]
